FAERS Safety Report 23516127 (Version 1)
Quarter: 2024Q1

REPORT INFORMATION
  Report Type: 
  Country: None (occurrence: None)
  Receive Date: 20240213
  Receipt Date: 20240213
  Transmission Date: 20240410
  Serious: No
  Sender: FDA-Public Use
  Company Number: CZ-ROCHE-3494563

PATIENT
  Age: 66 Year

DRUGS (4)
  1. VABYSMO [Suspect]
     Active Substance: FARICIMAB\FARICIMAB-SVOA
     Dates: start: 20231103, end: 20240104
  2. ROSUVASTATIN [Concomitant]
     Active Substance: ROSUVASTATIN
  3. TRAZODONE HYDROCHLORIDE [Concomitant]
     Active Substance: TRAZODONE HYDROCHLORIDE
  4. METFORMIN [Concomitant]
     Active Substance: METFORMIN HYDROCHLORIDE

REACTIONS (4)
  - General physical health deterioration [None]
  - Retinal occlusive vasculitis [None]
  - Iridocyclitis [None]
  - Uveitis [None]

NARRATIVE: CASE EVENT DATE: 20240115
